FAERS Safety Report 5864398-X (Version None)
Quarter: 2008Q3

REPORT INFORMATION
  Report Type: 
  Country: None (occurrence: None)
  Receive Date: 20080829
  Receipt Date: 20080818
  Transmission Date: 20090109
  Serious: Yes (Other)
  Sender: FDA-Public Use
  Company Number: IT-ELI_LILLY_AND_COMPANY-IT200808003488

PATIENT
  Sex: Male

DRUGS (2)
  1. GEMZAR [Suspect]
     Indication: RENAL CANCER METASTATIC
     Dosage: 800 MG/M2, CYCLIC
     Route: 042
     Dates: start: 20080801, end: 20080801
  2. SORAFENIB [Concomitant]
     Indication: RENAL CANCER METASTATIC
     Dosage: 800 MG, DAILY (1/D)
     Route: 048
     Dates: start: 20080801, end: 20080809

REACTIONS (1)
  - ERYTHEMA MULTIFORME [None]
